FAERS Safety Report 14966931 (Version 3)
Quarter: 2018Q2

REPORT INFORMATION
  Report Type: Spontaneous
  Country: US (occurrence: US)
  Receive Date: 20180604
  Receipt Date: 20180627
  Transmission Date: 20180711
  Serious: No
  Sender: FDA-Public Use
  Company Number: US-TEVA-2018-US-895613

PATIENT
  Sex: Female

DRUGS (2)
  1. NAPROXEN. [Concomitant]
     Active Substance: NAPROXEN
  2. METHYLPREDNISOLONE. [Suspect]
     Active Substance: METHYLPREDNISOLONE
     Indication: PAIN IN EXTREMITY
     Route: 065
     Dates: start: 20170304, end: 20170310

REACTIONS (3)
  - Abdominal discomfort [Recovered/Resolved]
  - Nasopharyngitis [Unknown]
  - Ageusia [Recovered/Resolved]

NARRATIVE: CASE EVENT DATE: 20170307
